FAERS Safety Report 14279894 (Version 1)
Quarter: 2017Q4

REPORT INFORMATION
  Report Type: Spontaneous
  Country: US (occurrence: US)
  Receive Date: 20171213
  Receipt Date: 20171213
  Transmission Date: 20180321
  Serious: Yes (Hospitalization, Other)
  Sender: FDA-Public Use
  Company Number: US-AMGEN-USASP2017182852

PATIENT
  Sex: Female

DRUGS (4)
  1. IRON [Concomitant]
     Active Substance: IRON
     Dosage: UNK
  2. VITAMIN B12 [Concomitant]
     Active Substance: CYANOCOBALAMIN
     Dosage: UNK
  3. EPOGEN [Suspect]
     Active Substance: ERYTHROPOIETIN
     Indication: NEPHROGENIC ANAEMIA
     Dosage: 15000 UNIT, QWK
     Route: 065
     Dates: end: 201711
  4. EPOGEN [Suspect]
     Active Substance: ERYTHROPOIETIN
     Dosage: 20000 UNIT, QWK
     Route: 065
     Dates: start: 20171201

REACTIONS (6)
  - Haemoglobin decreased [Unknown]
  - Bronchitis [Unknown]
  - Drug hypersensitivity [Unknown]
  - Transfusion [Unknown]
  - Inflammation [Unknown]
  - Unevaluable event [Unknown]

NARRATIVE: CASE EVENT DATE: 20171108
